FAERS Safety Report 24840270 (Version 1)
Quarter: 2025Q1

REPORT INFORMATION
  Report Type: Spontaneous
  Country: US (occurrence: US)
  Receive Date: 20250114
  Receipt Date: 20250114
  Transmission Date: 20250408
  Serious: Yes (Other)
  Sender: CHEPLAPHARM
  Company Number: None

PATIENT
  Age: 23 Year
  Sex: Male

DRUGS (27)
  1. OLANZAPINE [Suspect]
     Active Substance: OLANZAPINE
     Indication: Psychotic disorder
     Dates: start: 20181005, end: 20181115
  2. OLANZAPINE [Suspect]
     Active Substance: OLANZAPINE
     Indication: Agitation
     Dates: start: 20181005, end: 20181115
  3. CLONAZEPAM [Suspect]
     Active Substance: CLONAZEPAM
     Indication: Anxiety
     Dosage: DAILY DOSE: 0.5 MILLIGRAM
  4. CLONAZEPAM [Suspect]
     Active Substance: CLONAZEPAM
     Indication: Sleep disorder
     Dosage: DAILY DOSE: 0.5 MILLIGRAM
  5. ARIPIPRAZOLE [Concomitant]
     Active Substance: ARIPIPRAZOLE
     Indication: Psychotic disorder
     Dates: start: 20180908, end: 20200429
  6. ARIPIPRAZOLE [Concomitant]
     Active Substance: ARIPIPRAZOLE
     Indication: Agitation
     Dates: start: 20180908, end: 20200429
  7. HALOPERIDOL [Concomitant]
     Active Substance: HALOPERIDOL
     Indication: Psychotic disorder
     Dates: start: 20190327, end: 20210401
  8. HALOPERIDOL [Concomitant]
     Active Substance: HALOPERIDOL
     Indication: Agitation
     Dates: start: 20190327, end: 20210401
  9. RISPERIDONE [Concomitant]
     Active Substance: RISPERIDONE
     Indication: Agitation
     Dates: start: 20201029, end: 20211119
  10. RISPERIDONE [Concomitant]
     Active Substance: RISPERIDONE
     Indication: Psychotic disorder
     Dates: start: 20201029, end: 20211119
  11. LURASIDONE [Concomitant]
     Active Substance: LURASIDONE
     Indication: Agitation
     Dates: start: 20210625, end: 20211021
  12. LURASIDONE [Concomitant]
     Active Substance: LURASIDONE
     Indication: Psychotic disorder
     Dates: start: 20210625, end: 20211021
  13. METYROSINE [Concomitant]
     Active Substance: METYROSINE
     Indication: Psychotic disorder
     Dosage: DAILY DOSE: 250 MILLIGRAM
     Dates: start: 202108
  14. METYROSINE [Concomitant]
     Active Substance: METYROSINE
     Indication: Agitation
     Dosage: DAILY DOSE: 250 MILLIGRAM
     Dates: start: 202108
  15. METYROSINE [Concomitant]
     Active Substance: METYROSINE
     Indication: Psychotic disorder
     Dates: start: 20240701
  16. METYROSINE [Concomitant]
     Active Substance: METYROSINE
     Indication: Agitation
     Dates: start: 20240701
  17. METYROSINE [Concomitant]
     Active Substance: METYROSINE
     Indication: Psychotic disorder
  18. METYROSINE [Concomitant]
     Active Substance: METYROSINE
     Indication: Agitation
  19. METYROSINE [Concomitant]
     Active Substance: METYROSINE
     Indication: Psychotic disorder
  20. METYROSINE [Concomitant]
     Active Substance: METYROSINE
     Indication: Agitation
  21. METYROSINE [Concomitant]
     Active Substance: METYROSINE
     Indication: Psychotic disorder
  22. METYROSINE [Concomitant]
     Active Substance: METYROSINE
     Indication: Agitation
  23. CLOZAPINE [Concomitant]
     Active Substance: CLOZAPINE
     Indication: Agitation
  24. CLOZAPINE [Concomitant]
     Active Substance: CLOZAPINE
     Indication: Psychotic disorder
  25. METHYLDOPA [Concomitant]
     Active Substance: METHYLDOPA
     Indication: Agitation
     Dates: start: 20201125, end: 20210726
  26. METHYLDOPA [Concomitant]
     Active Substance: METHYLDOPA
     Indication: Psychotic disorder
     Dates: start: 20201125, end: 20210726
  27. OXCARBAZEPINE [Concomitant]
     Active Substance: OXCARBAZEPINE

REACTIONS (2)
  - Diabetes mellitus [Unknown]
  - Psychotic disorder [Unknown]

NARRATIVE: CASE EVENT DATE: 20181001
